FAERS Safety Report 4558365-6 (Version None)
Quarter: 2005Q1

REPORT INFORMATION
  Report Type: 
  Country: None (occurrence: None)
  Receive Date: 20050121
  Receipt Date: 20031222
  Transmission Date: 20050727
  Serious: No
  Sender: FDA-Public Use
  Company Number: US-BRISTOL-MYERS SQUIBB COMPANY-12463253

PATIENT
  Sex: Female
  Weight: 29 kg

DRUGS (6)
  1. IFEX [Suspect]
     Indication: SARCOMA UTERUS
     Route: 042
     Dates: start: 20031218, end: 20031220
  2. MESNA [Suspect]
     Indication: SARCOMA UTERUS
     Route: 042
     Dates: start: 20031218, end: 20031220
  3. LASIX [Concomitant]
  4. SYNTHROID [Concomitant]
  5. DEXAMETHASONE [Concomitant]
  6. TPN [Concomitant]

REACTIONS (1)
  - BLOOD URINE PRESENT [None]
